FAERS Safety Report 18969463 (Version 1)
Quarter: 2021Q1

REPORT INFORMATION
  Report Type: Report from Study
  Country: BE (occurrence: BE)
  Receive Date: 20210304
  Receipt Date: 20210304
  Transmission Date: 20210420
  Serious: Yes (Death, Hospitalization, Other)
  Sender: FDA-Public Use
  Company Number: BE-JNJFOC-20210242626

PATIENT

DRUGS (2)
  1. REMICADE [Suspect]
     Active Substance: INFLIXIMAB
     Indication: COLITIS ULCERATIVE
     Route: 042
  2. REMICADE [Suspect]
     Active Substance: INFLIXIMAB
     Indication: CROHN^S DISEASE

REACTIONS (12)
  - Cardiac failure congestive [Fatal]
  - Post procedural complication [Fatal]
  - Neoplasm malignant [Unknown]
  - Alopecia [Unknown]
  - Myalgia [Unknown]
  - Hospitalisation [Unknown]
  - Arthralgia [Unknown]
  - Skin disorder [Unknown]
  - Cardiac failure [Fatal]
  - Infection [Unknown]
  - Toxic neuropathy [Unknown]
  - Hypersensitivity [Unknown]
